FAERS Safety Report 21489790 (Version 3)
Quarter: 2023Q2

REPORT INFORMATION
  Report Type: Report from Study
  Country: US (occurrence: US)
  Receive Date: 20221021
  Receipt Date: 20230427
  Transmission Date: 20230721
  Serious: No
  Sender: FDA-Public Use
  Company Number: US-ABBVIE-4163020

PATIENT
  Age: 49 Year
  Sex: Male

DRUGS (3)
  1. SKYRIZI [Suspect]
     Active Substance: RISANKIZUMAB-RZAA
     Indication: Psoriasis
     Dosage: WEEK 4?FORM STRENGTH:150 MG
     Route: 058
     Dates: start: 202205, end: 202205
  2. SKYRIZI [Suspect]
     Active Substance: RISANKIZUMAB-RZAA
     Dosage: EVERY 12 WEEKS THEREAFTER?FIRST ADMIN DATE:2022
     Route: 058
  3. SKYRIZI [Suspect]
     Active Substance: RISANKIZUMAB-RZAA
     Dosage: WEEK 0?FORM STRENGTH:150 MG
     Route: 058
     Dates: start: 202204, end: 202204

REACTIONS (7)
  - Psoriasis [Not Recovered/Not Resolved]
  - Depressed mood [Unknown]
  - Malaise [Unknown]
  - Stress [Unknown]
  - Periorbital swelling [Not Recovered/Not Resolved]
  - Acne [Not Recovered/Not Resolved]
  - Arthralgia [Unknown]

NARRATIVE: CASE EVENT DATE: 20230101
